FAERS Safety Report 13875026 (Version 1)
Quarter: 2017Q3

REPORT INFORMATION
  Report Type: Spontaneous
  Country: US (occurrence: US)
  Receive Date: 20170816
  Receipt Date: 20170816
  Transmission Date: 20171127
  Serious: No
  Sender: FDA-Public Use
  Company Number: US-ROCHE-1251264

PATIENT
  Sex: Female

DRUGS (1)
  1. LUCENTIS [Suspect]
     Active Substance: RANIBIZUMAB
     Indication: NEOVASCULAR AGE-RELATED MACULAR DEGENERATION
     Dosage: DATE WHEN THE LAST DOSE OF RANIBIZUMAB WAS ADMINISTERED : 17/JUL/2013
     Route: 031

REACTIONS (2)
  - Eye pain [Recovered/Resolved]
  - Eyelid oedema [Recovered/Resolved]
